FAERS Safety Report 13319852 (Version 1)
Quarter: 2017Q1

REPORT INFORMATION
  Report Type: Spontaneous
  Country: AU (occurrence: AU)
  Receive Date: 20170309
  Receipt Date: 20170309
  Transmission Date: 20170428
  Serious: Yes (Other)
  Sender: FDA-Public Use
  Company Number: AU-BAUSCH-BL-2017-005557

PATIENT
  Sex: Male

DRUGS (1)
  1. PREDNISOLONE. [Suspect]
     Active Substance: PREDNISOLONE
     Indication: PRODUCT USED FOR UNKNOWN INDICATION
     Route: 065

REACTIONS (6)
  - Joint crepitation [Unknown]
  - Laryngomalacia [Unknown]
  - Crying [Unknown]
  - Abnormal behaviour [Unknown]
  - Developmental delay [Unknown]
  - Exposure during breast feeding [Unknown]
